FAERS Safety Report 16887212 (Version 1)
Quarter: 2019Q4

REPORT INFORMATION
  Report Type: Spontaneous
  Country: CH (occurrence: CH)
  Receive Date: 20191004
  Receipt Date: 20191004
  Transmission Date: 20200122
  Serious: Yes (Hospitalization, Other)
  Sender: FDA-Public Use
  Company Number: CH-ALLERGAN-1939887US

PATIENT
  Sex: Male
  Weight: 20 kg

DRUGS (2)
  1. ESCITALOPRAM OXALATE - BP [Suspect]
     Active Substance: ESCITALOPRAM OXALATE
     Indication: PRODUCT USED FOR UNKNOWN INDICATION
     Dosage: MISTAKENLY TAKE 20 DROPS (EQUAL TO 20 MG) AT ONCE; IN TOTAL
     Route: 048
     Dates: start: 20190805, end: 20190805
  2. FENIALLERG [Concomitant]
     Active Substance: DIMETHINDENE MALEATE
     Indication: URTICARIA

REACTIONS (1)
  - Product administered to patient of inappropriate age [Recovered/Resolved]

NARRATIVE: CASE EVENT DATE: 20190806
